FAERS Safety Report 24726201 (Version 1)
Quarter: 2024Q4

REPORT INFORMATION
  Report Type: Spontaneous
  Country: US (occurrence: None)
  Receive Date: 20241211
  Receipt Date: 20241211
  Transmission Date: 20250114
  Serious: Yes (Hospitalization)
  Sender: Public
  Company Number: None

PATIENT
  Age: 33 Year
  Sex: Male
  Weight: 113 kg

DRUGS (1)
  1. CLOZAPINE [Suspect]
     Active Substance: CLOZAPINE
     Indication: Schizoaffective disorder
     Route: 048
     Dates: start: 20240411

REACTIONS (2)
  - Cardiomyopathy [None]
  - Myocarditis [None]

NARRATIVE: CASE EVENT DATE: 20240430
